FAERS Safety Report 8095978-1 (Version None)
Quarter: 2012Q1

REPORT INFORMATION
  Report Type: 
  Country: None (occurrence: None)
  Receive Date: 20120129
  Receipt Date: 20111227
  Transmission Date: 20120608
  Serious: No
  Sender: FDA-Public Use
  Company Number: US-ABBOTT-11P-163-0886924-00

PATIENT
  Age: 57 Year
  Sex: Male

DRUGS (8)
  1. ULTRAM [Concomitant]
     Indication: INTERVERTEBRAL DISC DISORDER
     Route: 048
  2. PRAVASTATIN [Concomitant]
     Indication: BLOOD CHOLESTEROL INCREASED
     Route: 048
  3. VICODIN [Concomitant]
     Indication: INTERVERTEBRAL DISC DISORDER
     Route: 048
  4. ULTRAM [Concomitant]
  5. VICODIN [Concomitant]
  6. HUMIRA [Suspect]
     Indication: CROHN'S DISEASE
     Dosage: 4 PENS ON 19 DEC 2011 AS INITIAL DOSE
     Dates: start: 20111219, end: 20111219
  7. HUMIRA [Suspect]
  8. PREVACID [Concomitant]
     Indication: GASTROOESOPHAGEAL REFLUX DISEASE
     Route: 048

REACTIONS (4)
  - MIGRAINE [None]
  - DYSPNOEA [None]
  - OROPHARYNGEAL PAIN [None]
  - NIGHT SWEATS [None]
